FAERS Safety Report 5239147-9 (Version None)
Quarter: 2007Q1

REPORT INFORMATION
  Report Type: 
  Country: None (occurrence: None)
  Receive Date: 20061208
  Receipt Date: 20050524
  Transmission Date: 20070707
  Serious: Yes (Other)
  Sender: FDA-Public Use
  Company Number: 2005UW08036

PATIENT
  Age: 82 Year
  Sex: Female
  Weight: 81.646 kg

DRUGS (8)
  1. CRESTOR [Suspect]
     Dosage: 10 MG PO
     Route: 048
  2. TRICOR [Suspect]
     Indication: BLOOD TRIGLYCERIDES
     Dosage: 48 MG QD
  3. PREDNISONE [Concomitant]
  4. CARDIZEM CD [Concomitant]
  5. IMDUR [Concomitant]
  6. NEXIUM [Concomitant]
  7. FUROSEMIDE [Concomitant]
  8. DIOVAN [Concomitant]

REACTIONS (5)
  - FEELING ABNORMAL [None]
  - MALAISE [None]
  - MYALGIA [None]
  - NAUSEA [None]
  - SOMNOLENCE [None]
